FAERS Safety Report 8536911-5 (Version None)
Quarter: 2012Q3

REPORT INFORMATION
  Report Type: 
  Country: None (occurrence: None)
  Receive Date: 20120725
  Receipt Date: 20120717
  Transmission Date: 20120928
  Serious: Yes (Hospitalization)
  Sender: FDA-Public Use
  Company Number: US-CELGENEUS-163-21880-12071924

PATIENT
  Sex: Female

DRUGS (1)
  1. REVLIMID [Suspect]
     Indication: MYELODYSPLASTIC SYNDROME
     Dosage: 10 MILLIGRAM
     Route: 048
     Dates: start: 20120503, end: 20120716

REACTIONS (6)
  - NERVOUSNESS [None]
  - CONFUSIONAL STATE [None]
  - ASTHENIA [None]
  - NAUSEA [None]
  - ABASIA [None]
  - DIARRHOEA [None]
